FAERS Safety Report 9714798 (Version 1)
Quarter: 2013Q4

REPORT INFORMATION
  Report Type: Spontaneous
  Country: FR (occurrence: FR)
  Receive Date: 20131126
  Receipt Date: 20131126
  Transmission Date: 20140711
  Serious: Yes (Life-Threatening, Hospitalization, Other)
  Sender: FDA-Public Use
  Company Number: FR-WATSON-2013-21075

PATIENT
  Age: 69 Year
  Sex: Male

DRUGS (3)
  1. VANCOMYCIN (UNKNOWN) [Suspect]
     Indication: ENDOCARDITIS
     Dosage: UNK
     Route: 065
  2. RIFADINE /00146901/ [Suspect]
     Indication: ENDOCARDITIS
     Dosage: UNK
     Route: 065
  3. GENTALLINE [Concomitant]
     Indication: ENDOCARDITIS
     Dosage: UNK
     Route: 065

REACTIONS (4)
  - Drug reaction with eosinophilia and systemic symptoms [Recovering/Resolving]
  - Disseminated intravascular coagulation [Unknown]
  - Encephalopathy [Unknown]
  - Type 1 diabetes mellitus [Unknown]
